FAERS Safety Report 13881253 (Version 6)
Quarter: 2018Q1

REPORT INFORMATION
  Report Type: Spontaneous
  Country: US (occurrence: US)
  Receive Date: 20170818
  Receipt Date: 20180105
  Transmission Date: 20180508
  Serious: Yes (Hospitalization, Other)
  Sender: FDA-Public Use
  Company Number: US-009507513-1708USA007433

PATIENT
  Sex: Female
  Weight: 60.31 kg

DRUGS (1)
  1. NUVARING [Suspect]
     Active Substance: ETHINYL ESTRADIOL\ETONOGESTREL
     Indication: OVARIAN CYST
     Dosage: 1 DF, QM
     Route: 067
     Dates: start: 200411, end: 201509

REACTIONS (13)
  - Tricuspid valve incompetence [Unknown]
  - Cardiac ventricular disorder [Unknown]
  - Postmenopausal haemorrhage [Unknown]
  - Menometrorrhagia [Not Recovered/Not Resolved]
  - Product use in unapproved indication [Recovered/Resolved]
  - Pulmonary embolism [Unknown]
  - Chronic kidney disease [Unknown]
  - Pain in extremity [Unknown]
  - Deep vein thrombosis [Recovering/Resolving]
  - Anxiety [Unknown]
  - Urinary tract infection [Unknown]
  - Pulmonary hypertension [Unknown]
  - Herpes simplex [Unknown]

NARRATIVE: CASE EVENT DATE: 200411
